FAERS Safety Report 6550806-8 (Version None)
Quarter: 2010Q1

REPORT INFORMATION
  Report Type: 
  Country: None (occurrence: None)
  Receive Date: 20100125
  Receipt Date: 20090717
  Transmission Date: 20100710
  Serious: Yes (Other)
  Sender: FDA-Public Use
  Company Number: US-TYCO HEALTHCARE/MALLINCKRODT-T200901417

PATIENT

DRUGS (1)
  1. OPTIRAY 350 [Suspect]
     Dosage: UNK
     Route: 042
     Dates: start: 20090701, end: 20090701

REACTIONS (1)
  - THROAT TIGHTNESS [None]
